FAERS Safety Report 11798066 (Version 3)
Quarter: 2016Q1

REPORT INFORMATION
  Report Type: Spontaneous
  Country: US (occurrence: US)
  Receive Date: 20151203
  Receipt Date: 20160314
  Transmission Date: 20160525
  Serious: Yes (Hospitalization)
  Sender: FDA-Public Use
  Company Number: US-PFIZER INC-2015407315

PATIENT
  Age: 51 Year
  Sex: Female

DRUGS (7)
  1. CHRONULAC [Concomitant]
     Active Substance: LACTULOSE
     Dosage: 30 ML, DAILY
     Route: 048
  2. CLARITIN [Concomitant]
     Active Substance: LORATADINE
     Dosage: 10 MG DAILY AS NEEDED
     Route: 048
  3. IBRANCE [Suspect]
     Active Substance: PALBOCICLIB
     Indication: BREAST CANCER METASTATIC
     Dosage: 125 MG ONCE DAILY FOR 21 DAYS
     Route: 048
     Dates: start: 201509, end: 201509
  4. FEMARA [Suspect]
     Active Substance: LETROZOLE
     Indication: BREAST CANCER METASTATIC
     Dosage: 2.5 MG DAILY
     Route: 048
  5. OXYCODONE HYDROCHLORIDE. [Concomitant]
     Active Substance: OXYCODONE HYDROCHLORIDE
     Dosage: 10 MG EVERY 4 HOURS AS NEEDED
     Route: 048
  6. SUDAFED PE PRESSURE PLUS PAIN PLUS COUGH [Concomitant]
     Active Substance: ACETAMINOPHEN\DEXTROMETHORPHAN HYDROBROMIDE\PHENYLEPHRINE HYDROCHLORIDE
     Dosage: 1 DF EVERY 4 HOURS AS NEEDED
     Route: 048
  7. IBRANCE [Suspect]
     Active Substance: PALBOCICLIB
     Dosage: 100 MG ONCE DAILY FOR 21 DAYS
     Route: 048
     Dates: start: 201509

REACTIONS (5)
  - Pancytopenia [Unknown]
  - Eye swelling [Unknown]
  - Oedema [Unknown]
  - Confusional state [Unknown]
  - Fluid intake reduced [Unknown]

NARRATIVE: CASE EVENT DATE: 20150923
